FAERS Safety Report 18177758 (Version 1)
Quarter: 2020Q3

REPORT INFORMATION
  Report Type: Spontaneous
  Country: FR (occurrence: FR)
  Receive Date: 20200821
  Receipt Date: 20200821
  Transmission Date: 20201103
  Serious: Yes (Hospitalization, Other)
  Sender: FDA-Public Use
  Company Number: FR-AUROBINDO-AUR-APL-2020-040377

PATIENT
  Sex: Female
  Weight: 70 kg

DRUGS (1)
  1. TAMOXIFEN [Suspect]
     Active Substance: TAMOXIFEN
     Indication: BREAST CANCER
     Dosage: 20 MILLIGRAM, ONCE A DAY
     Route: 048
     Dates: start: 20160513, end: 20200605

REACTIONS (2)
  - Pneumothorax [Recovered/Resolved]
  - Endometriosis [Not Recovered/Not Resolved]

NARRATIVE: CASE EVENT DATE: 2019
